FAERS Safety Report 10367718 (Version 1)
Quarter: 2014Q3

REPORT INFORMATION
  Report Type: Spontaneous
  Country: NL (occurrence: NL)
  Receive Date: 20140807
  Receipt Date: 20140807
  Transmission Date: 20150326
  Serious: Yes (Death)
  Sender: FDA-Public Use
  Company Number: NL-PFIZER INC-2014219448

PATIENT
  Age: 70 Year
  Sex: Male
  Weight: 70 kg

DRUGS (9)
  1. GABAPENTIN. [Suspect]
     Active Substance: GABAPENTIN
     Indication: PAIN
     Dosage: 300 MG, 1X/DAY
     Dates: start: 20140721
  2. DICLOFENAC SODIUM. [Concomitant]
     Active Substance: DICLOFENAC SODIUM
     Indication: PAIN
     Dosage: 50 MG, 3X/DAY
     Dates: start: 20140710
  3. CARBIDOPA/ENTACAPONE/LEVODOPA [Concomitant]
     Indication: PARKINSONISM
     Dosage: 1 DF, 7X/DAY
     Dates: start: 20140123
  4. LEVODOPA W/BENSERAZIDE/ [Concomitant]
     Dosage: 100/25 MG, AS NEEDED
  5. ZOPICLON [Concomitant]
     Active Substance: ZOPICLONE
     Indication: SLEEP DISORDER
     Dosage: 7.5 MG, 1X/DAY
     Dates: start: 20140319
  6. GABAPENTIN. [Suspect]
     Active Substance: GABAPENTIN
     Dosage: 300 MG, 3X/DAY
     Dates: start: 20140724
  7. QUETIAPINE FUMARATE. [Suspect]
     Active Substance: QUETIAPINE FUMARATE
     Indication: HALLUCINATION
     Dosage: 25 MG, 2X/DAY
     Dates: start: 20140102
  8. LEVODOPA W/BENSERAZIDE/ [Concomitant]
     Indication: PARKINSONISM
     Dosage: 50/12.5 MG, 7X/DAY
     Dates: start: 20140123
  9. GABAPENTIN. [Suspect]
     Active Substance: GABAPENTIN
     Dosage: 300 MG, 2X/DAY

REACTIONS (2)
  - Syncope [Unknown]
  - Sudden death [Fatal]

NARRATIVE: CASE EVENT DATE: 20140723
